FAERS Safety Report 8203492-5 (Version None)
Quarter: 2012Q1

REPORT INFORMATION
  Report Type: 
  Country: None (occurrence: None)
  Receive Date: 20120313
  Receipt Date: 20120306
  Transmission Date: 20120608
  Serious: Yes (Hospitalization)
  Sender: FDA-Public Use
  Company Number: US-BIOGENIDEC-2012BI005770

PATIENT
  Age: 53 Year
  Sex: Female

DRUGS (7)
  1. AVONEX [Suspect]
     Indication: MULTIPLE SCLEROSIS
     Route: 030
     Dates: start: 20070925, end: 20111230
  2. AVONEX [Suspect]
     Route: 030
     Dates: start: 20120201
  3. MULTIPLE MEDICATIONS NOS [Concomitant]
     Indication: MULTIPLE SCLEROSIS
  4. MULTIPLE MEDICATIONS NOS [Concomitant]
     Indication: CONVULSION
  5. MULTIPLE MEDICATIONS NOS [Concomitant]
     Indication: CORONARY ARTERY DISEASE
  6. MULTIPLE MEDICATIONS NOS [Concomitant]
     Indication: MITRAL VALVE PROLAPSE
  7. MULTIPLE MEDICATIONS NOS [Concomitant]
     Indication: SUPRAVENTRICULAR TACHYCARDIA

REACTIONS (2)
  - URINARY TRACT INFECTION [None]
  - ABASIA [None]
